FAERS Safety Report 5188130-0 (Version None)
Quarter: 2006Q4

REPORT INFORMATION
  Report Type: 
  Country: None (occurrence: None)
  Receive Date: 20061221
  Receipt Date: 20061211
  Transmission Date: 20070319
  Serious: Yes (Other)
  Sender: FDA-Public Use
  Company Number: PHBS2006US19680

PATIENT
  Age: 53 Year
  Sex: Female

DRUGS (4)
  1. IMATINIB MESYLATE [Suspect]
     Indication: CHRONIC MYELOID LEUKAEMIA
     Dosage: 400 MG/DAY
     Dates: start: 20030401, end: 20030501
  2. IMATINIB MESYLATE [Suspect]
     Dosage: 600 MG/DAY
     Dates: start: 20030501, end: 20040701
  3. IMATINIB MESYLATE [Suspect]
     Dosage: 800 MG/DAY
     Dates: start: 20040701, end: 20051001
  4. IMATINIB MESYLATE [Suspect]
     Dosage: 400 MG/DAY
     Dates: start: 20051001

REACTIONS (3)
  - DYSPNOEA [None]
  - LUNG DISORDER [None]
  - PNEUMONITIS [None]
